FAERS Safety Report 13574239 (Version 2)
Quarter: 2017Q2

REPORT INFORMATION
  Report Type: Spontaneous
  Country: US (occurrence: US)
  Receive Date: 20170523
  Receipt Date: 20170629
  Transmission Date: 20170830
  Serious: Yes (Other)
  Sender: FDA-Public Use
  Company Number: US-INCYTE CORPORATION-2017IN003782

PATIENT

DRUGS (11)
  1. JADENU [Concomitant]
     Active Substance: DEFERASIROX
     Dosage: 360 MG
     Dates: start: 20170414
  2. VITAMIN B12 [Concomitant]
     Active Substance: CYANOCOBALAMIN
     Indication: PRODUCT USED FOR UNKNOWN INDICATION
     Dosage: 100 MCG
     Dates: start: 20161018
  3. JAKAFI [Suspect]
     Active Substance: RUXOLITINIB
     Indication: MYELODYSPLASTIC SYNDROME
     Dosage: 5 MG, QD
     Route: 048
     Dates: start: 20160622
  4. LEVOTHYROXINE. [Concomitant]
     Active Substance: LEVOTHYROXINE
     Indication: PRODUCT USED FOR UNKNOWN INDICATION
     Dosage: 75 MCG
     Dates: start: 20161018
  5. ONDASETRON                         /00955301/ [Concomitant]
     Active Substance: ONDANSETRON
     Indication: PRODUCT USED FOR UNKNOWN INDICATION
     Dosage: 8 MG
     Dates: start: 20161018
  6. WARFARIN [Concomitant]
     Active Substance: WARFARIN
     Indication: PRODUCT USED FOR UNKNOWN INDICATION
     Dosage: 7.5 MG
     Dates: start: 20161018
  7. VITAMIN D [Concomitant]
     Active Substance: CHOLECALCIFEROL
     Indication: PRODUCT USED FOR UNKNOWN INDICATION
     Dosage: 50000 UNT
     Dates: start: 20161018
  8. PROCRIT [Concomitant]
     Active Substance: ERYTHROPOIETIN
     Indication: PRODUCT USED FOR UNKNOWN INDICATION
     Dosage: UNK
     Dates: start: 20141116
  9. JAKAFI [Suspect]
     Active Substance: RUXOLITINIB
     Indication: MYELOFIBROSIS
     Dosage: 5 MG, QD
     Route: 048
     Dates: start: 201610
  10. ESCITALOPRAM [Concomitant]
     Active Substance: ESCITALOPRAM OXALATE
     Indication: PRODUCT USED FOR UNKNOWN INDICATION
     Dosage: 10 MG
     Dates: start: 20161018
  11. JADENU [Concomitant]
     Active Substance: DEFERASIROX
     Indication: PRODUCT USED FOR UNKNOWN INDICATION
     Dosage: 180 MG
     Dates: start: 20170414, end: 20170414

REACTIONS (13)
  - White blood cell count decreased [Unknown]
  - Sleep disorder [Unknown]
  - Haematocrit decreased [Unknown]
  - Pollakiuria [Unknown]
  - Cardiac murmur [Unknown]
  - Off label use [Not Recovered/Not Resolved]
  - Dizziness [Unknown]
  - Nocturia [Unknown]
  - Gait disturbance [Unknown]
  - Haemoglobin decreased [Unknown]
  - Blood count abnormal [Not Recovered/Not Resolved]
  - Cystitis noninfective [Unknown]
  - Anaemia [Unknown]

NARRATIVE: CASE EVENT DATE: 20160622
